FAERS Safety Report 6660759-X (Version None)
Quarter: 2010Q1

REPORT INFORMATION
  Report Type: 
  Country: None (occurrence: None)
  Receive Date: 20100326
  Receipt Date: 20100316
  Transmission Date: 20100710
  Serious: Yes (Other)
  Sender: FDA-Public Use
  Company Number: 1000012611

PATIENT
  Age: 76 Year
  Sex: Male
  Weight: 98 kg

DRUGS (5)
  1. MEMANTINE HCL [Suspect]
     Indication: VASCULAR DEMENTIA
     Dosage: 20 MG (20 MG,1 IN 1 D)
     Dates: start: 20090906, end: 20090910
  2. LYRICA [Suspect]
     Indication: DIABETIC NEUROPATHY
     Dosage: 75 MG (25 MG,3 IN 1 D)
     Dates: start: 20090906, end: 20090912
  3. EUTHYROX (125 MICROGRAM) [Concomitant]
  4. AMARYL [Concomitant]
  5. EZETROL (20 MILLIGRAM) [Concomitant]

REACTIONS (6)
  - ATAXIA [None]
  - DISTURBANCE IN ATTENTION [None]
  - DIZZINESS [None]
  - DRUG INTERACTION [None]
  - FATIGUE [None]
  - SPEECH DISORDER [None]
